FAERS Safety Report 10086604 (Version 1)
Quarter: 2014Q2

REPORT INFORMATION
  Report Type: Spontaneous
  Country: US (occurrence: US)
  Receive Date: 20140418
  Receipt Date: 20140418
  Transmission Date: 20141212
  Serious: Yes (Hospitalization)
  Sender: FDA-Public Use
  Company Number: US-PFIZER INC-2014105175

PATIENT
  Age: 61 Year
  Sex: Male

DRUGS (1)
  1. SOMAVERT [Suspect]
     Dosage: 20 MG, 1X/DAY
     Dates: start: 20100318

REACTIONS (1)
  - Vomiting [Unknown]
